FAERS Safety Report 11251283 (Version 1)
Quarter: 2015Q3

REPORT INFORMATION
  Report Type: Spontaneous
  Country: US (occurrence: US)
  Receive Date: 20150708
  Receipt Date: 20150708
  Transmission Date: 20151125
  Serious: No
  Sender: FDA-Public Use
  Company Number: US-ELI_LILLY_AND_COMPANY-US201110006576

PATIENT
  Sex: Male

DRUGS (3)
  1. SYMBYAX [Suspect]
     Active Substance: FLUOXETINE HYDROCHLORIDE\OLANZAPINE
     Indication: BIPOLAR DISORDER
     Dosage: 6/25MG ONCE DAILY
     Dates: end: 2003
  2. SYMBYAX [Suspect]
     Active Substance: FLUOXETINE HYDROCHLORIDE\OLANZAPINE
     Dosage: 12/25MG ONCE DAILY
     Dates: end: 2003
  3. SYMBYAX [Suspect]
     Active Substance: FLUOXETINE HYDROCHLORIDE\OLANZAPINE
     Dosage: 6/25MG ONCE DAILY
     Dates: end: 2003

REACTIONS (3)
  - Lethargy [Unknown]
  - Renal disorder [Unknown]
  - Weight increased [Unknown]
